FAERS Safety Report 20560486 (Version 2)
Quarter: 2022Q1

REPORT INFORMATION
  Report Type: Report from Study
  Country: US (occurrence: US)
  Receive Date: 20220307
  Receipt Date: 20220321
  Transmission Date: 20220423
  Serious: Yes (Hospitalization, Other)
  Sender: FDA-Public Use
  Company Number: US-BAYER-2022A027034

PATIENT
  Age: 77 Year
  Sex: Female
  Weight: 82.086 kg

DRUGS (3)
  1. ADEMPAS [Suspect]
     Active Substance: RIOCIGUAT
     Indication: Pulmonary arterial hypertension
     Dosage: 0.5 MG, TID
     Route: 048
     Dates: start: 20211222, end: 202201
  2. UPTRAVI [Suspect]
     Active Substance: SELEXIPAG
     Dosage: 400 ?G, BID
  3. OPSUMIT [Concomitant]
     Active Substance: MACITENTAN
     Dosage: UNK
     Dates: end: 2022

REACTIONS (8)
  - Foot operation [None]
  - Post procedural infection [None]
  - Localised infection [None]
  - Surgery [None]
  - Pyrexia [None]
  - Suture rupture [None]
  - Headache [None]
  - Blood pressure diastolic decreased [None]

NARRATIVE: CASE EVENT DATE: 20220101
